FAERS Safety Report 9549027 (Version 1)
Quarter: 2013Q3

REPORT INFORMATION
  Report Type: Other
  Country: IT (occurrence: IT)
  Receive Date: 20130924
  Receipt Date: 20130924
  Transmission Date: 20140515
  Serious: Yes (Other)
  Sender: FDA-Public Use
  Company Number: IT-NOVEN-13IT007716

PATIENT
  Age: 38 Year
  Sex: Male

DRUGS (2)
  1. PAROXETINE [Suspect]
     Indication: SCHIZOPHRENIA
     Dosage: 20 MG, QD
     Route: 048
     Dates: start: 20130101, end: 20130601
  2. RISPERDAL [Suspect]
     Indication: SCHIZOPHRENIA
     Dosage: 2 DF, 1/MONTH
     Route: 058
     Dates: start: 20130101, end: 20130601

REACTIONS (2)
  - Head injury [Unknown]
  - Loss of consciousness [Unknown]
